FAERS Safety Report 19098528 (Version 2)
Quarter: 2021Q2

REPORT INFORMATION
  Report Type: Spontaneous
  Country: US (occurrence: US)
  Receive Date: 20210406
  Receipt Date: 20210416
  Transmission Date: 20210717
  Serious: Yes (Other)
  Sender: FDA-Public Use
  Company Number: US-LANNETT COMPANY, INC.-US-2021LAN000105

PATIENT
  Sex: Female

DRUGS (9)
  1. BUTALBITAL, ACETAMINOPHEN, AND CAFFEINE [Suspect]
     Active Substance: ACETAMINOPHEN\BUTALBITAL\CAFFEINE
     Indication: PAIN
     Dosage: UNK
     Route: 065
  2. BRIVIACT [Concomitant]
     Active Substance: BRIVARACETAM
     Indication: PRODUCT USED FOR UNKNOWN INDICATION
     Dosage: UNK
     Route: 065
  3. DEPAKOTE [Concomitant]
     Active Substance: DIVALPROEX SODIUM
     Indication: PRODUCT USED FOR UNKNOWN INDICATION
     Dosage: UNK
     Route: 065
  4. KLONOPIN [Concomitant]
     Active Substance: CLONAZEPAM
     Indication: PRODUCT USED FOR UNKNOWN INDICATION
     Dosage: UNK
     Route: 065
  5. PERCOCET                           /00446701/ [Concomitant]
     Active Substance: ACETAMINOPHEN\OXYCODONE HYDROCHLORIDE\OXYCODONE TEREPHTHALATE
     Indication: PRODUCT USED FOR UNKNOWN INDICATION
     Dosage: UNK
     Route: 065
  6. GALCANEZUMAB [Concomitant]
     Active Substance: GALCANEZUMAB
     Indication: PRODUCT USED FOR UNKNOWN INDICATION
     Dosage: UNK
     Route: 065
  7. LYRICA [Concomitant]
     Active Substance: PREGABALIN
     Indication: PRODUCT USED FOR UNKNOWN INDICATION
     Dosage: UNK
     Route: 065
  8. KEPPRA [Concomitant]
     Active Substance: LEVETIRACETAM
     Indication: PRODUCT USED FOR UNKNOWN INDICATION
     Dosage: UNK
     Route: 065
  9. IMITREX [Concomitant]
     Active Substance: SUMATRIPTAN SUCCINATE
     Indication: PRODUCT USED FOR UNKNOWN INDICATION
     Dosage: UNK
     Route: 065

REACTIONS (13)
  - Mental impairment [Unknown]
  - Epilepsy [Unknown]
  - Foot operation [Unknown]
  - Concussion [Unknown]
  - Fall [Unknown]
  - Foot deformity [Unknown]
  - Neuropathy peripheral [Unknown]
  - Morton^s neuralgia [Unknown]
  - Cerebrovascular accident [Unknown]
  - Neck surgery [Unknown]
  - Nerve injury [Unknown]
  - Fibromyalgia [Unknown]
  - Herpes zoster [Unknown]

NARRATIVE: CASE EVENT DATE: 2008
